FAERS Safety Report 21818455 (Version 1)
Quarter: 2023Q1

REPORT INFORMATION
  Report Type: Spontaneous
  Country: US (occurrence: US)
  Receive Date: 20230104
  Receipt Date: 20230104
  Transmission Date: 20230417
  Serious: No
  Sender: FDA-Public Use
  Company Number: US-EVOFEM BIOSCIENCES, INC.-2021-EVO-US003427

PATIENT

DRUGS (1)
  1. PHEXXI [Suspect]
     Active Substance: CITRIC ACID MONOHYDRATE\LACTIC ACID, L-\POTASSIUM BITARTRATE
     Indication: Contraception
     Dosage: 5 G, PRN (AS NEEDED), APPLIED IMMEDIATELY BEFORE PENETRATION
     Route: 067
     Dates: start: 202102

REACTIONS (5)
  - Pregnancy [Recovered/Resolved]
  - Drug ineffective [Unknown]
  - Nausea [Not Recovered/Not Resolved]
  - Polyhydramnios [Unknown]
  - COVID-19 [Unknown]

NARRATIVE: CASE EVENT DATE: 20211108
